FAERS Safety Report 19638108 (Version 1)
Quarter: 2021Q3

REPORT INFORMATION
  Report Type: Spontaneous
  Country: US (occurrence: US)
  Receive Date: 20210730
  Receipt Date: 20210730
  Transmission Date: 20211014
  Serious: No
  Sender: FDA-Public Use
  Company Number: US-DENTSPLY PHARMACEUTICAL-2020SCDP000303

PATIENT
  Sex: Female

DRUGS (1)
  1. LIDOCAINE HCL [Suspect]
     Active Substance: LIDOCAINE HYDROCHLORIDE
     Indication: ANAESTHESIA
     Dosage: TOTAL INTRAOPERATIVE LIDOCAINE DOSE INCLUDED THE INTRAVENOUS DOSE (TOTAL DOSE GREATER THAN 7 MG/KG)
     Route: 067

REACTIONS (1)
  - Toxicity to various agents [Unknown]
